FAERS Safety Report 5447571-4 (Version None)
Quarter: 2007Q3

REPORT INFORMATION
  Report Type: 
  Country: None (occurrence: None)
  Receive Date: 20070905
  Receipt Date: 20070827
  Transmission Date: 20080115
  Serious: Yes (Hospitalization, Other)
  Sender: FDA-Public Use
  Company Number: L07-BGR-03620-01

PATIENT
  Age: 28 Year
  Sex: Male

DRUGS (4)
  1. CARBAMAZEPINE [Suspect]
     Dosage: 600 MG QD
  2. CLONIDINE [Concomitant]
  3. DIAZEPAM [Concomitant]
  4. ALCOHOL [Concomitant]

REACTIONS (9)
  - ARTHRALGIA [None]
  - BLOOD CREATINE PHOSPHOKINASE INCREASED [None]
  - DRUG HYPERSENSITIVITY [None]
  - HAEMOPHILUS INFECTION [None]
  - HEPATOSPLENOMEGALY [None]
  - PNEUMONIA [None]
  - SPUTUM CULTURE POSITIVE [None]
  - TACHYCARDIA [None]
  - TOXIC EPIDERMAL NECROLYSIS [None]
